FAERS Safety Report 9771122 (Version 1)
Quarter: 2013Q4

REPORT INFORMATION
  Report Type: Spontaneous
  Country: US (occurrence: US)
  Receive Date: 20131218
  Receipt Date: 20131218
  Transmission Date: 20140711
  Serious: No
  Sender: FDA-Public Use
  Company Number: US-009507513-1312USA006982

PATIENT
  Sex: Female

DRUGS (13)
  1. VICTRELIS [Suspect]
     Indication: HEPATITIS C
     Dosage: 800 MG, TID
     Route: 048
     Dates: start: 201304
  2. REBETOL [Suspect]
     Indication: HEPATITIS C
     Route: 048
  3. PEGASYS [Suspect]
     Indication: HEPATITIS C
  4. LOSARTAN POTASSIUM [Concomitant]
     Route: 048
  5. ONDANSETRON HYDROCHLORIDE [Concomitant]
  6. TRAZODONE HYDROCHLORIDE [Concomitant]
  7. NUVIGIL [Concomitant]
  8. PROMETHAZINE [Concomitant]
  9. CITALOPRAM [Concomitant]
  10. ETODOLAC [Concomitant]
  11. ORPHENADRINE [Concomitant]
  12. PROCRIT [Concomitant]
  13. METHOCARBAMOL [Concomitant]

REACTIONS (5)
  - Fall [Recovering/Resolving]
  - Concussion [Recovering/Resolving]
  - Musculoskeletal discomfort [Recovering/Resolving]
  - Alopecia [Recovering/Resolving]
  - Irritability [Recovering/Resolving]
